FAERS Safety Report 16771494 (Version 5)
Quarter: 2020Q1

REPORT INFORMATION
  Report Type: Spontaneous
  Country: US (occurrence: US)
  Receive Date: 20190904
  Receipt Date: 20200218
  Transmission Date: 20200409
  Serious: No
  Sender: FDA-Public Use
  Company Number: US-PFIZER INC-2019379528

PATIENT
  Age: 79 Year
  Sex: Male
  Weight: 60.77 kg

DRUGS (3)
  1. VYNDAQEL [Suspect]
     Active Substance: TAFAMIDIS MEGLUMINE
     Dosage: 20 MG, 4X/DAY
  2. VYNDAQEL [Suspect]
     Active Substance: TAFAMIDIS MEGLUMINE
     Indication: AMYLOIDOSIS
     Dosage: 20 MG, 1X/DAY
  3. VYNDAQEL [Suspect]
     Active Substance: TAFAMIDIS MEGLUMINE
     Dosage: 80 MG, UNK

REACTIONS (4)
  - Off label use [Unknown]
  - Hypoacusis [Unknown]
  - Product use in unapproved indication [Unknown]
  - Gait disturbance [Unknown]
